FAERS Safety Report 20172492 (Version 1)
Quarter: 2021Q4

REPORT INFORMATION
  Report Type: Spontaneous
  Country: US (occurrence: US)
  Receive Date: 20211210
  Receipt Date: 20211210
  Transmission Date: 20220304
  Serious: No
  Sender: FDA-Public Use
  Company Number: US-FRESENIUS KABI-FK202113795

PATIENT

DRUGS (1)
  1. PROTAMINE SULFATE [Suspect]
     Active Substance: PROTAMINE SULFATE
     Indication: Procoagulant therapy
     Dosage: UNKNOWN
     Route: 065
     Dates: start: 2021, end: 2021

REACTIONS (2)
  - Intentional product use issue [Unknown]
  - Drug ineffective [Unknown]

NARRATIVE: CASE EVENT DATE: 20210101
